FAERS Safety Report 4881232-5 (Version None)
Quarter: 2006Q1

REPORT INFORMATION
  Report Type: 
  Country: None (occurrence: None)
  Receive Date: 20060116
  Receipt Date: 20060105
  Transmission Date: 20060701
  Serious: Yes (Hospitalization)
  Sender: FDA-Public Use
  Company Number: FR-JNJFOC-20060101205

PATIENT
  Age: 90 Year
  Sex: Female

DRUGS (6)
  1. RISPERDAL [Suspect]
     Indication: DRUG USE FOR UNKNOWN INDICATION
     Route: 048
     Dates: start: 20050706, end: 20051117
  2. EBIXA [Suspect]
     Indication: DRUG USE FOR UNKNOWN INDICATION
     Route: 048
     Dates: start: 20050624, end: 20051117
  3. ARICEPT [Concomitant]
     Route: 065
  4. SEROPRAM [Concomitant]
     Route: 065
  5. LIPANTHYL [Concomitant]
     Route: 065
  6. ALDACTONE [Concomitant]
     Route: 065

REACTIONS (3)
  - DISTURBANCE IN ATTENTION [None]
  - FALL [None]
  - SOMNOLENCE [None]
